FAERS Safety Report 21935356 (Version 1)
Quarter: 2023Q1

REPORT INFORMATION
  Report Type: Spontaneous
  Country: US (occurrence: US)
  Receive Date: 20230201
  Receipt Date: 20230201
  Transmission Date: 20230417
  Serious: Yes (Other)
  Sender: FDA-Public Use
  Company Number: US-CELLTRION INC.-2023US001838

PATIENT

DRUGS (1)
  1. TRUXIMA [Suspect]
     Active Substance: RITUXIMAB-ABBS
     Indication: Haemolytic anaemia
     Dosage: 757 MG ONCE A WEEK EVERY 4 WEEKS
     Dates: start: 20200427

REACTIONS (4)
  - Autoimmune disorder [Unknown]
  - Haemolytic anaemia [Unknown]
  - Splenectomy [Unknown]
  - Off label use [Unknown]
